FAERS Safety Report 10035496 (Version 2)
Quarter: 2014Q2

REPORT INFORMATION
  Report Type: Spontaneous
  Country: US (occurrence: US)
  Receive Date: 20140325
  Receipt Date: 20140506
  Transmission Date: 20141212
  Serious: No
  Sender: FDA-Public Use
  Company Number: US-PFIZER INC-2014081115

PATIENT
  Age: 62 Year
  Sex: Female

DRUGS (11)
  1. PROTONIX [Suspect]
     Indication: GASTROOESOPHAGEAL REFLUX DISEASE
     Dosage: 40 MG, 1X/DAY
     Route: 048
     Dates: start: 2008
  2. CRESTOR [Concomitant]
     Dosage: UNK
  3. TRICOR [Concomitant]
     Dosage: UNK
  4. LISINOPRIL W/HYDROCHLOROTHIAZIDE [Concomitant]
     Dosage: UNK
  5. ASA [Concomitant]
     Dosage: UNK
  6. PRADAXA [Concomitant]
     Dosage: UNK
  7. AMIODARONE [Concomitant]
     Dosage: UNK
  8. TRAMADOL [Concomitant]
     Dosage: UNK
  9. ALPRAZOLAM [Concomitant]
     Dosage: UNK
  10. ALBUTEROL [Concomitant]
     Dosage: UNK
  11. HYDROCODONE [Concomitant]
     Dosage: UNK

REACTIONS (3)
  - Headache [Not Recovered/Not Resolved]
  - Paranasal sinus hypersecretion [Not Recovered/Not Resolved]
  - Rhinorrhoea [Not Recovered/Not Resolved]
